FAERS Safety Report 25233835 (Version 1)
Quarter: 2025Q2

REPORT INFORMATION
  Report Type: Spontaneous
  Country: US (occurrence: None)
  Receive Date: 20250424
  Receipt Date: 20250424
  Transmission Date: 20250717
  Serious: Yes (Life-Threatening, Hospitalization)
  Sender: NORDIC PHARMA
  Company Number: US-MLMSERVICE-20250331-PI462025-00218-1

PATIENT
  Age: 49 Year
  Sex: Female

DRUGS (3)
  1. METHOTREXATE [Suspect]
     Active Substance: METHOTREXATE
     Indication: Granulomatosis with polyangiitis
  2. RITUXIMAB [Concomitant]
     Active Substance: RITUXIMAB
     Indication: Granulomatosis with polyangiitis
  3. PREDNISONE [Concomitant]
     Active Substance: PREDNISONE
     Indication: Granulomatosis with polyangiitis

REACTIONS (8)
  - Hyperammonaemia [Recovered/Resolved]
  - Product use in unapproved indication [Unknown]
  - Mycoplasma infection [Unknown]
  - Drug level increased [Unknown]
  - Ureaplasma infection [Unknown]
  - Acute respiratory failure [Unknown]
  - Encephalopathy [Recovered/Resolved]
  - Urinary tract infection [Unknown]
